FAERS Safety Report 15288978 (Version 1)
Quarter: 2018Q3

REPORT INFORMATION
  Report Type: Spontaneous
  Country: US (occurrence: US)
  Receive Date: 20180817
  Receipt Date: 20180817
  Transmission Date: 20181010
  Serious: Yes (Hospitalization)
  Sender: FDA-Public Use
  Company Number: US-UGNX-US-UGNX-18-00116

PATIENT
  Age: 60 Year
  Sex: Female
  Weight: 46.2 kg

DRUGS (1)
  1. CRYSVITA [Suspect]
     Active Substance: BUROSUMAB-TWZA
     Indication: PRODUCT USED FOR UNKNOWN INDICATION
     Dates: start: 20180801

REACTIONS (8)
  - Heart rate increased [Unknown]
  - Tremor [Unknown]
  - Headache [Unknown]
  - Hypertension [Unknown]
  - Palpitations [Recovering/Resolving]
  - Dizziness [Unknown]
  - Dry mouth [Unknown]
  - Nausea [Unknown]

NARRATIVE: CASE EVENT DATE: 20180801
